FAERS Safety Report 6243506-5 (Version None)
Quarter: 2009Q2

REPORT INFORMATION
  Report Type: 
  Country: None (occurrence: None)
  Receive Date: 20090622
  Receipt Date: 20090608
  Transmission Date: 20091009
  Serious: Yes (Other)
  Sender: FDA-Public Use
  Company Number: 1000005185

PATIENT
  Age: 21 Year
  Sex: Female

DRUGS (4)
  1. LEXAPRO [Suspect]
     Indication: DEPRESSION
     Dosage: 20 MG (20 MG,1 IN 1 D),ORAL
     Route: 048
     Dates: start: 20040101, end: 20081001
  2. LEXAPRO [Suspect]
     Indication: DEPRESSION
     Dosage: ORAL
     Route: 048
     Dates: start: 20081001, end: 20090201
  3. ALPRAZOLAM [Concomitant]
  4. PSYCHOTROPICS (NOS) [Concomitant]

REACTIONS (1)
  - AMENORRHOEA [None]
